FAERS Safety Report 16889900 (Version 2)
Quarter: 2020Q1

REPORT INFORMATION
  Report Type: Spontaneous
  Country: CA (occurrence: CA)
  Receive Date: 20191007
  Receipt Date: 20200204
  Transmission Date: 20200409
  Serious: Yes (Other)
  Sender: FDA-Public Use
  Company Number: CA-ORION CORPORATION ORION PHARMA-TREX2019-3990

PATIENT
  Age: 67 Year
  Sex: Female

DRUGS (15)
  1. PREDNISONE. [Concomitant]
     Active Substance: PREDNISONE
     Route: 065
     Dates: end: 201906
  2. NOVO-FOLACID [Concomitant]
     Indication: PSORIATIC ARTHROPATHY
  3. XELJANZ [Concomitant]
     Active Substance: TOFACITINIB CITRATE
     Indication: PSORIATIC ARTHROPATHY
     Route: 065
  4. ELTROXIN [Concomitant]
     Active Substance: LEVOTHYROXINE
     Indication: PSORIASIS
     Route: 065
  5. NOVO-FOLACID [Concomitant]
     Indication: PSORIASIS
     Route: 048
  6. ARAVA [Concomitant]
     Active Substance: LEFLUNOMIDE
     Indication: PSORIATIC ARTHROPATHY
  7. METHOTREXATE (TRADE NAME UNKNOWN) [Suspect]
     Active Substance: METHOTREXATE
     Indication: PSORIATIC ARTHROPATHY
     Dosage: STRENGTH: 2.5 MG TABLET, 8 TABLETS
     Route: 048
     Dates: start: 201906
  8. ARAVA [Concomitant]
     Active Substance: LEFLUNOMIDE
     Indication: PSORIASIS
     Route: 048
     Dates: start: 201907
  9. PREDNISONE. [Concomitant]
     Active Substance: PREDNISONE
     Route: 065
     Dates: start: 201906, end: 201907
  10. PREDNISONE. [Concomitant]
     Active Substance: PREDNISONE
     Route: 065
     Dates: start: 201907
  11. DEPO-MEDROL [Concomitant]
     Active Substance: METHYLPREDNISOLONE ACETATE
     Indication: ASPIRATION JOINT
     Route: 065
     Dates: start: 201906, end: 201906
  12. PREDNISONE. [Concomitant]
     Active Substance: PREDNISONE
     Dosage: FOR 4 WEEKS
     Route: 048
     Dates: end: 20190925
  13. PREDNISONE. [Concomitant]
     Active Substance: PREDNISONE
     Dosage: STRENGTH: 5MG
     Route: 048
     Dates: start: 20190925
  14. TYLENOL ARTHRITIS PAIN [Concomitant]
     Active Substance: ACETAMINOPHEN
     Route: 065
  15. ELTROXIN [Concomitant]
     Active Substance: LEVOTHYROXINE
     Indication: PSORIATIC ARTHROPATHY

REACTIONS (8)
  - Arthralgia [Recovered/Resolved]
  - Spinal pain [Unknown]
  - Psoriatic arthropathy [Unknown]
  - Osteoarthritis [Unknown]
  - Groin pain [Unknown]
  - Joint swelling [Recovered/Resolved]
  - Therapeutic product effect incomplete [Unknown]
  - Fatigue [Unknown]

NARRATIVE: CASE EVENT DATE: 2019
